FAERS Safety Report 4615231-5 (Version None)
Quarter: 2005Q1

REPORT INFORMATION
  Report Type: 
  Country: None (occurrence: None)
  Receive Date: 20050317
  Receipt Date: 20050303
  Transmission Date: 20050727
  Serious: Yes (Hospitalization)
  Sender: FDA-Public Use
  Company Number: 6013419

PATIENT
  Age: 93 Year
  Sex: Female

DRUGS (5)
  1. CARDENSIEL                         (BISOPROLOL) [Suspect]
     Indication: DRUG USE FOR UNKNOWN INDICATION
     Dosage: 2 DOSAGE, ORAL
     Route: 048
     Dates: start: 20041218
  2. IMOVANE                     (ZOPICLONE) [Suspect]
     Indication: DRUG USE FOR UNKNOWN INDICATION
     Dosage: 0,5 DOSAGE, ORAL
     Route: 048
     Dates: start: 20041218
  3. PREVISCAN                    (FLUINDIONE) [Concomitant]
  4. LASILIX           (FUROSEMIDE) [Concomitant]
  5. ALDACTONE [Concomitant]

REACTIONS (5)
  - ATRIAL FIBRILLATION [None]
  - BLOOD PRESSURE DIASTOLIC DECREASED [None]
  - BRADYCARDIA [None]
  - LOSS OF CONSCIOUSNESS [None]
  - MALAISE [None]
